FAERS Safety Report 18891860 (Version 1)
Quarter: 2021Q1

REPORT INFORMATION
  Report Type: Spontaneous
  Country: US (occurrence: US)
  Receive Date: 20210215
  Receipt Date: 20210215
  Transmission Date: 20210420
  Serious: No
  Sender: FDA-Public Use
  Company Number: US-SA-2021SA051397

PATIENT
  Sex: Male

DRUGS (2)
  1. DUPIXENT [Suspect]
     Active Substance: DUPILUMAB
     Indication: DERMATITIS ATOPIC
     Dosage: 300 MG, QOW
     Route: 058
     Dates: start: 202011
  2. DUPIXENT [Suspect]
     Active Substance: DUPILUMAB
     Indication: PSORIASIS

REACTIONS (7)
  - Ocular hyperaemia [Unknown]
  - Eye pruritus [Unknown]
  - Lacrimation increased [Unknown]
  - Product use in unapproved indication [Unknown]
  - Sneezing [Unknown]
  - Eye swelling [Unknown]
  - Dry eye [Unknown]

NARRATIVE: CASE EVENT DATE: 202011
